FAERS Safety Report 6485125-1 (Version None)
Quarter: 2009Q4

REPORT INFORMATION
  Report Type: 
  Country: None (occurrence: None)
  Receive Date: 20091204
  Receipt Date: 20091201
  Transmission Date: 20100525
  Serious: Yes (Hospitalization)
  Sender: FDA-Public Use
  Company Number: 2009SP039326

PATIENT
  Age: 59 Year
  Sex: Female
  Weight: 40 kg

DRUGS (3)
  1. RIBAVIRIN [Suspect]
     Indication: HEPATITIS C
     Dosage: 600 MG;PO ; 400 MG;PO
     Route: 048
     Dates: start: 20090216, end: 20090629
  2. RIBAVIRIN [Suspect]
     Indication: HEPATITIS C
     Dosage: 600 MG;PO ; 400 MG;PO
     Route: 048
     Dates: start: 20090113
  3. PEG INTERFERON (INTEFERONS) [Suspect]
     Indication: HEPATITIS C
     Dosage: 80 MCG;SC
     Route: 058
     Dates: start: 20090113, end: 20090629

REACTIONS (4)
  - ANAEMIA [None]
  - CONDITION AGGRAVATED [None]
  - HEPATITIS B [None]
  - PROTHROMBIN TIME SHORTENED [None]
